FAERS Safety Report 10817598 (Version 1)
Quarter: 2015Q1

REPORT INFORMATION
  Report Type: Spontaneous
  Country: CN (occurrence: None)
  Receive Date: 20150213
  Receipt Date: 20150213
  Transmission Date: 20150721
  Serious: Yes (Other)
  Sender: FDA-Public Use
  Company Number: FK201500690

PATIENT
  Age: 64 Year
  Sex: Male

DRUGS (1)
  1. INTRALIPID [Suspect]
     Active Substance: EGG PHOSPHOLIPIDS\GLYCERIN\SOYBEAN OIL
     Indication: NUTRITIONAL SUPPLEMENTATION
     Route: 041
     Dates: start: 20140814, end: 20140814

REACTIONS (6)
  - Dyspnoea [None]
  - Temperature intolerance [None]
  - Tremor [None]
  - Oxygen saturation decreased [None]
  - Chills [None]
  - Anaphylactoid reaction [None]

NARRATIVE: CASE EVENT DATE: 20140814
